FAERS Safety Report 5819954-1 (Version None)
Quarter: 2008Q3

REPORT INFORMATION
  Report Type: 
  Country: None (occurrence: None)
  Receive Date: 20080721
  Receipt Date: 20080710
  Transmission Date: 20090109
  Serious: Yes (Death, Hospitalization)
  Sender: FDA-Public Use
  Company Number: 2008AL003498

PATIENT
  Age: 64 Year
  Sex: Male
  Weight: 65.7716 kg

DRUGS (7)
  1. DIGOXIN [Suspect]
     Indication: ARRHYTHMIA
     Dosage: 1.25MG DAILY PO
     Route: 048
     Dates: start: 20070801, end: 20080401
  2. DIGOXIN [Suspect]
  3. INSULIN [Concomitant]
  4. COUMADIN [Concomitant]
  5. CARDIZEM [Concomitant]
  6. LISINOPRIL [Concomitant]
  7. CRESTOR [Concomitant]

REACTIONS (12)
  - ANAESTHETIC COMPLICATION [None]
  - AORTIC STENOSIS [None]
  - ATRIAL FIBRILLATION [None]
  - CARDIAC ARREST [None]
  - CORONARY ARTERY DISEASE [None]
  - CORONARY ARTERY OCCLUSION [None]
  - DIZZINESS [None]
  - DYSPNOEA [None]
  - FATIGUE [None]
  - MYOCARDIAL INFARCTION [None]
  - POST PROCEDURAL COMPLICATION [None]
  - TOOTH EXTRACTION [None]
